FAERS Safety Report 5483869-1 (Version None)
Quarter: 2007Q4

REPORT INFORMATION
  Report Type: 
  Country: None (occurrence: None)
  Receive Date: 20071012
  Receipt Date: 20071004
  Transmission Date: 20080405
  Serious: Yes (Life-Threatening, Hospitalization)
  Sender: FDA-Public Use
  Company Number: AU-JNJFOC-20071001310

PATIENT
  Sex: Female
  Weight: 65 kg

DRUGS (3)
  1. RISPERDAL [Suspect]
     Indication: DEPRESSION
  2. RISPERDAL [Suspect]
     Indication: METABOLIC DISORDER
  3. CITALOPRAM HYDROBROMIDE [Concomitant]
     Indication: DEPRESSION

REACTIONS (6)
  - AGITATION [None]
  - CRYING [None]
  - DRUG WITHDRAWAL SYNDROME [None]
  - HALLUCINATION, AUDITORY [None]
  - HYPERHIDROSIS [None]
  - SUICIDE ATTEMPT [None]
